FAERS Safety Report 4572977-5 (Version None)
Quarter: 2005Q1

REPORT INFORMATION
  Report Type: 
  Country: None (occurrence: None)
  Receive Date: 20050203
  Receipt Date: 20050121
  Transmission Date: 20050727
  Serious: Yes (Other)
  Sender: FDA-Public Use
  Company Number: CIP05000085

PATIENT
  Age: 79 Year
  Sex: Female

DRUGS (5)
  1. ACTONEL [Suspect]
     Indication: OSTEOPOROSIS
     Dosage: 35 MG UNKNOWN, ORAL
     Route: 048
     Dates: start: 20031201
  2. VERPAMIL (VERAPAMIL HYDROCHLORIDE) [Concomitant]
  3. VITAMIN B COMPLEX CAP [Concomitant]
  4. CALCIUM (CALCIUM) [Concomitant]
  5. VITAMIN D [Concomitant]

REACTIONS (5)
  - DYSPHONIA [None]
  - NASOPHARYNGEAL DISORDER [None]
  - PHARYNGITIS [None]
  - SPEECH DISORDER [None]
  - THROAT TIGHTNESS [None]
